FAERS Safety Report 4579608-9 (Version None)
Quarter: 2005Q1

REPORT INFORMATION
  Report Type: 
  Country: None (occurrence: None)
  Receive Date: 20050210
  Receipt Date: 20050126
  Transmission Date: 20050727
  Serious: Yes (Death)
  Sender: FDA-Public Use
  Company Number: 2004AL000534

PATIENT
  Age: 20 Year
  Sex: Male

DRUGS (3)
  1. ALPRAZOLAM [Suspect]
     Dosage: PO
     Route: 048
  2. METHADONE HCL [Suspect]
     Dosage: PO
     Route: 048
  3. MIRTAZAPINE [Suspect]
     Dosage: PO
     Route: 048

REACTIONS (11)
  - BRADYPNOEA [None]
  - CARDIOMEGALY [None]
  - COMA [None]
  - DRUG ABUSER [None]
  - DRUG TOXICITY [None]
  - FOREIGN BODY ASPIRATION [None]
  - HEPATOSPLENOMEGALY [None]
  - PNEUMONIA [None]
  - PULMONARY CONGESTION [None]
  - PULMONARY OEDEMA [None]
  - REGURGITATION OF FOOD [None]
